FAERS Safety Report 9656661 (Version 2)
Quarter: 2013Q4

REPORT INFORMATION
  Report Type: Report from Study
  Country: JP (occurrence: JP)
  Receive Date: 20131030
  Receipt Date: 20131125
  Transmission Date: 20140711
  Serious: Yes (Death, Life-Threatening)
  Sender: FDA-Public Use
  Company Number: JP-PFIZER INC-2013306226

PATIENT
  Age: 61 Year
  Sex: Male
  Weight: 63 kg

DRUGS (1)
  1. AXITINIB [Suspect]
     Indication: RENAL CELL CARCINOMA
     Dosage: 5 MG, 2X/DAY
     Route: 048
     Dates: start: 20130730, end: 20130805

REACTIONS (3)
  - Disease progression [Fatal]
  - Renal cell carcinoma [Fatal]
  - Fatigue [Not Recovered/Not Resolved]
